FAERS Safety Report 7597458-6 (Version None)
Quarter: 2011Q3

REPORT INFORMATION
  Report Type: 
  Country: None (occurrence: None)
  Receive Date: 20110708
  Receipt Date: 20110628
  Transmission Date: 20111222
  Serious: Yes (Other)
  Sender: FDA-Public Use
  Company Number: PHHY2011CA42534

PATIENT
  Sex: Male

DRUGS (5)
  1. ZOMETA [Suspect]
     Indication: PROSTATE CANCER METASTATIC
     Dosage: 4 MG, EVERY 4 WEEKS
     Route: 042
     Dates: start: 20070101
  2. METFORMIN HCL [Concomitant]
  3. ASPIRIN [Concomitant]
  4. ATORVASTATIN [Concomitant]
  5. PROPRANOLOL [Concomitant]

REACTIONS (6)
  - OSTEITIS [None]
  - PURULENCE [None]
  - SWELLING [None]
  - GINGIVAL INFECTION [None]
  - ABSCESS [None]
  - PAIN [None]
